FAERS Safety Report 4782685-3 (Version None)
Quarter: 2005Q3

REPORT INFORMATION
  Report Type: 
  Country: None (occurrence: None)
  Receive Date: 20050929
  Receipt Date: 20050711
  Transmission Date: 20060218
  Serious: No
  Sender: FDA-Public Use
  Company Number: US-GLAXOSMITHKLINE-A0565745A

PATIENT
  Sex: Female

DRUGS (10)
  1. COREG [Suspect]
     Dosage: 6.25MG TWICE PER DAY
     Route: 048
  2. LASIX [Concomitant]
     Route: 065
  3. POTASSIUM [Concomitant]
  4. SPIRONOLACTONE [Concomitant]
  5. ALCAINE [Concomitant]
  6. MYDRIACYL [Concomitant]
     Route: 065
  7. TETRACAINE POLYGYL STERILE OPHTHALMIC SOLUTION [Concomitant]
  8. COUMADIN [Concomitant]
  9. DIOVAN [Concomitant]
     Route: 065
  10. LANOXIN [Concomitant]

REACTIONS (1)
  - HEART RATE IRREGULAR [None]
